FAERS Safety Report 20478113 (Version 3)
Quarter: 2022Q2

REPORT INFORMATION
  Report Type: Report from Study
  Country: AR (occurrence: AR)
  Receive Date: 20220216
  Receipt Date: 20220406
  Transmission Date: 20220721
  Serious: Yes (Life-Threatening, Hospitalization, Other)
  Sender: FDA-Public Use
  Company Number: AR-BRISTOL-MYERS SQUIBB COMPANY-BMS-2022-019683

PATIENT
  Age: 83 Year
  Sex: Female
  Weight: 59 kg

DRUGS (20)
  1. CARBOPLATIN [Suspect]
     Active Substance: CARBOPLATIN
     Indication: Non-small cell lung cancer
     Dosage: MOST RECENT DOSE RECEIVED ON 16-DEC-2021 AT THE DOSE OF 153 MG
     Dates: start: 20211028, end: 20211216
  2. PACLITAXEL [Suspect]
     Active Substance: PACLITAXEL
     Indication: Non-small cell lung cancer
     Dosage: MOST RECENT DOSE RECEIVED ON 16-DEC-2021 AT THE DOSE OF 74 MG
     Dates: start: 20211028, end: 20211216
  3. ENALAPRIL [Concomitant]
     Active Substance: ENALAPRIL
     Indication: Product used for unknown indication
     Dosage: EVERY 24 HOURS
     Route: 048
     Dates: start: 20210930
  4. ENALAPRIL [Concomitant]
     Active Substance: ENALAPRIL
     Dosage: ONGOING
     Route: 048
     Dates: start: 2021
  5. NIMODIPINE [Concomitant]
     Active Substance: NIMODIPINE
     Indication: Product used for unknown indication
     Dosage: EVERY 24 HOURS
     Route: 048
     Dates: start: 2005
  6. NIMODIPINE [Concomitant]
     Active Substance: NIMODIPINE
     Dosage: EVERY 24 HOURS
     Route: 048
     Dates: start: 20210930
  7. ASPIRIN [Concomitant]
     Active Substance: ASPIRIN
     Indication: Product used for unknown indication
     Dosage: EVERY 24 HOURS
     Route: 048
     Dates: start: 2005
  8. ASPIRIN [Concomitant]
     Active Substance: ASPIRIN
     Dosage: EVERY 24 HOURS
     Route: 048
     Dates: start: 20210930
  9. DAFLON [Concomitant]
     Indication: Product used for unknown indication
     Dosage: DAILY; PER DAY?ONGOING
     Route: 048
     Dates: start: 2010
  10. DAFLON [Concomitant]
     Dosage: DAILY; PER DAY?ONGOING
     Route: 048
     Dates: start: 20210930
  11. HESPERIDIN [Concomitant]
     Active Substance: HESPERIDIN
     Indication: Product used for unknown indication
     Dosage: DAILY; PER DAY?ONGOING
     Route: 048
     Dates: start: 2010
  12. HESPERIDIN [Concomitant]
     Active Substance: HESPERIDIN
     Dosage: DAILY; PER DAY
     Route: 048
     Dates: start: 20210930
  13. SOLIFENACIN [Concomitant]
     Active Substance: SOLIFENACIN
     Indication: Product used for unknown indication
     Dosage: DAILY; PER DAY?ONGOING
     Route: 048
     Dates: start: 2018
  14. SOLIFENACIN [Concomitant]
     Active Substance: SOLIFENACIN
     Dosage: DAILY; PER DAY?ONGOING
     Route: 048
     Dates: start: 20210930
  15. CODEINE [Concomitant]
     Active Substance: CODEINE
     Indication: Product used for unknown indication
     Dosage: 1 DOSAGE FORM = 15 UNIT NOS, Q6H?ONGOING
     Route: 048
     Dates: start: 20211126
  16. ROSUVASTATIN [Concomitant]
     Active Substance: ROSUVASTATIN
     Indication: Product used for unknown indication
     Dosage: 10 MILLIGRAM, QD?ONGOING
     Route: 048
     Dates: start: 20210930
  17. ROSUVASTATIN [Concomitant]
     Active Substance: ROSUVASTATIN
     Dosage: 40 MILLIGRAM, QD?ONGOING
     Route: 048
     Dates: start: 20220203
  18. ROSUVASTATIN [Concomitant]
     Active Substance: ROSUVASTATIN
     Dosage: ONGOING
     Route: 048
     Dates: start: 2005
  19. BISOPROLOL [Concomitant]
     Active Substance: BISOPROLOL
     Indication: Product used for unknown indication
     Dosage: DAILY; PER DAY?ONGOING
     Route: 048
     Dates: start: 20220203
  20. SPUTNIK V [Concomitant]
     Indication: Prophylaxis
     Dosage: FIRST DOSE
     Route: 030
     Dates: start: 202103

REACTIONS (2)
  - Anaemia [Recovered/Resolved]
  - Embolism [Recovered/Resolved]

NARRATIVE: CASE EVENT DATE: 20220206
